FAERS Safety Report 23803351 (Version 1)
Quarter: 2024Q2

REPORT INFORMATION
  Report Type: Spontaneous
  Country: US (occurrence: None)
  Receive Date: 20240430
  Receipt Date: 20240430
  Transmission Date: 20240716
  Serious: Yes (Hospitalization)
  Sender: FDA-Public Use
  Company Number: None

PATIENT
  Age: 45 Year
  Sex: Female
  Weight: 83.25 kg

DRUGS (1)
  1. TIRZEPATIDE [Suspect]
     Active Substance: TIRZEPATIDE
     Indication: Weight decreased
     Dosage: OTHER QUANTITY : 1 INJECTION(S);?OTHER FREQUENCY : 1 WEEKLY;?OTHER ROUTE : INJECTION TO STOMACH;?
     Route: 050
     Dates: start: 20231012, end: 20240101

REACTIONS (1)
  - Appendicitis [None]

NARRATIVE: CASE EVENT DATE: 20231225
